FAERS Safety Report 20018465 (Version 1)
Quarter: 2021Q4

REPORT INFORMATION
  Report Type: Spontaneous
  Country: AT (occurrence: AT)
  Receive Date: 20211101
  Receipt Date: 20211101
  Transmission Date: 20220303
  Serious: Yes (Other)
  Sender: FDA-Public Use
  Company Number: AT-AMGEN-AUTSP2021162444

PATIENT
  Sex: Female

DRUGS (11)
  1. KYPROLIS [Suspect]
     Active Substance: CARFILZOMIB
     Indication: Plasma cell myeloma
     Dosage: 20 MILLIGRAM/SQ. METER DAY 1, DAY 2, DAY 8, DAY 9, DAY 15, DAY 16
     Route: 065
     Dates: start: 201707
  2. KYPROLIS [Suspect]
     Active Substance: CARFILZOMIB
     Dosage: 27 MILLIGRAM/SQ. METER DAY 1, DAY 2, DAY 8, DAY 9, DAY 15, DAY 16
     Route: 065
     Dates: end: 201801
  3. KYPROLIS [Suspect]
     Active Substance: CARFILZOMIB
     Dosage: 20 MILLIGRAM/SQ. METER  DAY 1, DAY 2, DAY 8, DAY 9, DAY 15, DAY 16
     Route: 065
     Dates: start: 201901
  4. KYPROLIS [Suspect]
     Active Substance: CARFILZOMIB
     Dosage: 36 MILLIGRAM/SQ. METER  DAY 1, DAY 2, DAY 8, DAY 9, DAY 15, DAY 16
     Route: 065
     Dates: end: 201911
  5. XGEVA [Suspect]
     Active Substance: DENOSUMAB
     Indication: Product used for unknown indication
     Dosage: UNK
     Route: 065
  6. FILGRASTIM [Suspect]
     Active Substance: FILGRASTIM
     Indication: Product used for unknown indication
     Dosage: UNK
     Route: 065
  7. REVLIMID [Suspect]
     Active Substance: LENALIDOMIDE
     Indication: Plasma cell myeloma
     Dosage: 25 MILLIGRAM
     Route: 065
     Dates: start: 201707, end: 201801
  8. REVLIMID [Suspect]
     Active Substance: LENALIDOMIDE
     Dosage: 15 MILLIGRAM
     Route: 065
     Dates: start: 201802, end: 201803
  9. DEXAMETHASONE [Suspect]
     Active Substance: DEXAMETHASONE
     Indication: Plasma cell myeloma
     Dosage: UNK
     Route: 065
  10. ASPIRIN [Suspect]
     Active Substance: ASPIRIN
     Indication: Plasma cell myeloma
     Dosage: 100 MILLIGRAM
     Route: 065
     Dates: start: 201707, end: 201801
  11. CYCLOPHOSPHAMIDE [Suspect]
     Active Substance: CYCLOPHOSPHAMIDE
     Indication: Plasma cell myeloma
     Dosage: UNK
     Route: 065

REACTIONS (10)
  - Transient ischaemic attack [Unknown]
  - Agranulocytosis [Unknown]
  - Pneumonia respiratory syncytial viral [Unknown]
  - Renal failure [Unknown]
  - Therapy non-responder [Unknown]
  - Infection [Unknown]
  - Catheter site inflammation [Unknown]
  - Off label use [Unknown]
  - Back pain [Unknown]
  - Dehydration [Unknown]
